FAERS Safety Report 7756528-X (Version None)
Quarter: 2011Q3

REPORT INFORMATION
  Report Type: 
  Country: None (occurrence: None)
  Receive Date: 20110916
  Receipt Date: 20110902
  Transmission Date: 20111222
  Serious: Yes (Hospitalization)
  Sender: FDA-Public Use
  Company Number: US-UCBSA-041281

PATIENT
  Sex: Female

DRUGS (8)
  1. ANTIBIOTICS [Concomitant]
     Indication: CROHN'S DISEASE
  2. AMINOSALICYLATES [Concomitant]
     Indication: CROHN'S DISEASE
  3. LUTERA [Concomitant]
  4. IMMUNOSUPPRESSANTS [Concomitant]
     Indication: CROHN'S DISEASE
  5. CERTOLIZUMAB PEGOL [Suspect]
     Indication: CROHN'S DISEASE
     Dosage: 400 MG
     Route: 058
     Dates: start: 20110315
  6. ERTAPENEM [Concomitant]
     Dosage: 1 G/D
     Route: 042
  7. CORTICOSTERIODS [Concomitant]
     Indication: CROHN'S DISEASE
  8. TYLENOL-500 [Concomitant]

REACTIONS (1)
  - ABDOMINAL ABSCESS [None]
